FAERS Safety Report 4316200-5 (Version None)
Quarter: 2004Q1

REPORT INFORMATION
  Report Type: 
  Country: None (occurrence: None)
  Receive Date: 20040312
  Receipt Date: 20040311
  Transmission Date: 20041129
  Serious: Yes (Other)
  Sender: FDA-Public Use
  Company Number: US-GLAXOSMITHKLINE-A0502362A

PATIENT
  Sex: Female

DRUGS (1)
  1. PAXIL [Suspect]
     Route: 048

REACTIONS (3)
  - ARTERIAL OCCLUSIVE DISEASE [None]
  - MYOCARDIAL INFARCTION [None]
  - SUICIDE ATTEMPT [None]
